FAERS Safety Report 7520991-X (Version None)
Quarter: 2011Q2

REPORT INFORMATION
  Report Type: 
  Country: None (occurrence: None)
  Receive Date: 20110603
  Receipt Date: 20101022
  Transmission Date: 20111010
  Serious: No
  Sender: FDA-Public Use
  Company Number: US-BAYER-201040694NA

PATIENT
  Age: 23 Year
  Sex: Female
  Weight: 45 kg

DRUGS (9)
  1. PREVACID [Concomitant]
  2. ZOCOR [Concomitant]
     Dosage: UNK UNK, HS
     Route: 048
  3. YASMIN [Suspect]
     Indication: ACNE
  4. YAZ [Suspect]
     Indication: ACNE
  5. NEXIUM [Concomitant]
     Dosage: UNK UNK, QD
     Route: 048
  6. ZITHROMAX [Concomitant]
     Dosage: 250 MG, QD
     Route: 048
  7. ALLEGRA [Concomitant]
     Dosage: 180 MG, QD
     Route: 048
  8. ALBUTEROL INHALER [Concomitant]
     Dosage: UNK UNK, PRN
  9. DROSPIRENONE AND ETHINYL ESTRADIOL [Suspect]
     Indication: ACNE

REACTIONS (2)
  - PAIN [None]
  - INJURY [None]
